FAERS Safety Report 7288439-0 (Version None)
Quarter: 2011Q1

REPORT INFORMATION
  Report Type: 
  Country: None (occurrence: None)
  Receive Date: 20110211
  Receipt Date: 20110112
  Transmission Date: 20110831
  Serious: Yes (Other)
  Sender: FDA-Public Use
  Company Number: A0912766A

PATIENT
  Age: 75 Year
  Sex: Female

DRUGS (6)
  1. CALCIUM [Concomitant]
  2. ADVAIR [Suspect]
     Indication: PRODUCT USED FOR UNKNOWN INDICATION
     Route: 055
  3. OMEGA FISH OIL [Concomitant]
  4. VITAMIN D [Concomitant]
  5. ALBUTEROL [Concomitant]
  6. LEVOTHYROXINE SODIUM [Concomitant]

REACTIONS (4)
  - WHEEZING [None]
  - INCREASED BRONCHIAL SECRETION [None]
  - BRONCHOPNEUMONIA [None]
  - SINUSITIS [None]
